FAERS Safety Report 9911366 (Version 1)
Quarter: 2014Q1

REPORT INFORMATION
  Report Type: Spontaneous
  Country: US (occurrence: US)
  Receive Date: 20140219
  Receipt Date: 20140219
  Transmission Date: 20141002
  Serious: No
  Sender: FDA-Public Use
  Company Number: US-GILEAD-2012-0056631

PATIENT
  Age: 48 Year
  Sex: Male

DRUGS (2)
  1. LETAIRIS [Suspect]
     Indication: PRODUCT USED FOR UNKNOWN INDICATION
     Dosage: 5 MG, UNK
     Route: 048
     Dates: start: 20101104
  2. REVATIO [Concomitant]

REACTIONS (5)
  - Syncope [Unknown]
  - Blood potassium decreased [Unknown]
  - Dizziness [Unknown]
  - Fatigue [Unknown]
  - Sinusitis [Unknown]
